FAERS Safety Report 6067481-1 (Version None)
Quarter: 2009Q1

REPORT INFORMATION
  Report Type: 
  Country: None (occurrence: None)
  Receive Date: 20090205
  Receipt Date: 20090202
  Transmission Date: 20090719
  Serious: Yes (Other)
  Sender: FDA-Public Use
  Company Number: US-TEVA-184820USA

PATIENT
  Age: 55 Year
  Sex: Female

DRUGS (6)
  1. ALENDRONAT SODIUM, TABLETS, 5MG, 10MG, 40MG, 35MG, 70MG [Suspect]
     Indication: OSTEOPOROSIS
  2. CALCIUM [Concomitant]
  3. ERGOCALCIFEROL [Concomitant]
  4. VENLAFAXINE HCL [Concomitant]
     Indication: HOT FLUSH
  5. PRIMROSE OIL [Concomitant]
  6. MULTI-VITAMIN [Concomitant]

REACTIONS (1)
  - FOCAL SEGMENTAL GLOMERULOSCLEROSIS [None]
